FAERS Safety Report 20682668 (Version 1)
Quarter: 2022Q2

REPORT INFORMATION
  Report Type: Spontaneous
  Country: US (occurrence: US)
  Receive Date: 20220407
  Receipt Date: 20220407
  Transmission Date: 20220721
  Serious: Yes (Other)
  Sender: FDA-Public Use
  Company Number: US-SA-SAC20220405001921

PATIENT
  Age: 40 Year
  Sex: Female

DRUGS (1)
  1. ZANTAC [Suspect]
     Active Substance: RANITIDINE HYDROCHLORIDE
     Dosage: UNK UNK, QD
     Dates: start: 201403, end: 201902

REACTIONS (5)
  - Gastrointestinal carcinoma [Unknown]
  - Renal cancer [Unknown]
  - Hepatic cancer [Unknown]
  - Ovarian cancer [Unknown]
  - Gastric cancer [Unknown]

NARRATIVE: CASE EVENT DATE: 20200301
